FAERS Safety Report 7155653 (Version 6)
Quarter: 2014Q1

REPORT INFORMATION
  Report Type: Report from Study
  Country: JP (occurrence: JP)
  Receive Date: 20091022
  Receipt Date: 20140207
  Transmission Date: 20141002
  Serious: Yes (Hospitalization)
  Sender: FDA-Public Use
  Company Number: PHHO2009JP10046

PATIENT
  Age: 37 Year
  Sex: Female
  Weight: 58 kg

DRUGS (3)
  1. FTY 720 [Suspect]
     Indication: MULTIPLE SCLEROSIS
     Dosage: DOSE BLINDED
     Route: 048
     Dates: start: 20081008, end: 20090331
  2. FTY 720 [Suspect]
     Dosage: UNK
     Route: 048
     Dates: start: 20090401, end: 20090811
  3. TEGRETOL [Suspect]
     Indication: MULTIPLE SCLEROSIS
     Dosage: 200 MG, QD
     Dates: start: 20090701, end: 20090714

REACTIONS (27)
  - Neuromyelitis optica [Recovering/Resolving]
  - Optic nerve disorder [Recovering/Resolving]
  - Nuclear magnetic resonance imaging abnormal [Recovering/Resolving]
  - Antibody test positive [Recovering/Resolving]
  - Multiple sclerosis relapse [Not Recovered/Not Resolved]
  - Central nervous system lesion [Not Recovered/Not Resolved]
  - Drug ineffective [Not Recovered/Not Resolved]
  - Multiple sclerosis [Not Recovered/Not Resolved]
  - Optic neuritis [Not Recovered/Not Resolved]
  - Hypoaesthesia [Recovering/Resolving]
  - Muscular weakness [Recovering/Resolving]
  - Sensation of heaviness [Recovering/Resolving]
  - Malaise [Recovering/Resolving]
  - Eye pain [Recovering/Resolving]
  - Vision blurred [Not Recovered/Not Resolved]
  - Visual field defect [Not Recovered/Not Resolved]
  - Lhermitte^s sign [Recovering/Resolving]
  - Sensory loss [Recovering/Resolving]
  - Eye disorder [Recovering/Resolving]
  - Nausea [Recovering/Resolving]
  - Hiccups [Recovering/Resolving]
  - Nervous system disorder [Recovering/Resolving]
  - Vomiting [Unknown]
  - Dysarthria [Recovering/Resolving]
  - Dizziness [Recovering/Resolving]
  - Haemorrhage subcutaneous [Recovered/Resolved]
  - Pyrexia [Recovered/Resolved]
